FAERS Safety Report 8879982 (Version 2)
Quarter: 2012Q4

REPORT INFORMATION
  Report Type: 
  Country: JP (occurrence: JP)
  Receive Date: 20121031
  Receipt Date: 20121107
  Transmission Date: 20130627
  Serious: Yes (Death)
  Sender: FDA-Public Use
  Company Number: JP-ROCHE-793529

PATIENT
  Age: 73 Year
  Sex: Male

DRUGS (2)
  1. AVASTIN [Suspect]
     Indication: RECTAL CANCER
     Route: 041
  2. AVASTIN [Suspect]
     Indication: RECTAL CANCER METASTATIC
     Route: 041
     Dates: start: 201104, end: 201107

REACTIONS (3)
  - Jejunal perforation [Fatal]
  - Complications of intestinal transplant [Fatal]
  - Osteomyelitis [Fatal]
